FAERS Safety Report 6617256-7 (Version None)
Quarter: 2010Q1

REPORT INFORMATION
  Report Type: 
  Country: None (occurrence: None)
  Receive Date: 20100307
  Receipt Date: 20090216
  Transmission Date: 20100710
  Serious: No
  Sender: FDA-Public Use
  Company Number: US-BAYER-200913342GPV

PATIENT
  Age: 66 Year
  Sex: Male

DRUGS (4)
  1. MAGNEVIST [Suspect]
     Indication: NUCLEAR MAGNETIC RESONANCE IMAGING
     Dosage: 20 CM3 PER INJECTION OF 0,5 MOL/L
     Route: 042
  2. MAGNEVIST [Suspect]
     Dosage: 15 CM3 PER INJECTION OF 0,5 MOL/L
     Route: 042
  3. MAGNEVIST [Suspect]
     Dosage: 15 CM3 PER INJECTION OF 0,5 MOL/L
     Route: 042
  4. MAGNEVIST [Suspect]
     Dosage: 15 CM3 PER INJECTION OF 0,5 MOL/L
     Route: 042
     Dates: start: 20020101

REACTIONS (3)
  - NEPHROGENIC SYSTEMIC FIBROSIS [None]
  - SKIN HYPERPIGMENTATION [None]
  - SKIN INDURATION [None]
